FAERS Safety Report 14896473 (Version 1)
Quarter: 2018Q2

REPORT INFORMATION
  Report Type: Spontaneous
  Country: US (occurrence: US)
  Receive Date: 20180515
  Receipt Date: 20180515
  Transmission Date: 20180711
  Serious: Yes (Hospitalization)
  Sender: FDA-Public Use
  Company Number: US-JNJFOC-20180518738

PATIENT
  Age: 69 Year
  Sex: Male

DRUGS (2)
  1. INVOKANA [Suspect]
     Active Substance: CANAGLIFLOZIN
     Indication: TYPE 2 DIABETES MELLITUS
     Route: 048
     Dates: start: 20160818
  2. INVOKANA [Suspect]
     Active Substance: CANAGLIFLOZIN
     Indication: TYPE IIB HYPERLIPIDAEMIA
     Route: 048
     Dates: start: 20160818

REACTIONS (2)
  - Gangrene [Unknown]
  - Leg amputation [Unknown]

NARRATIVE: CASE EVENT DATE: 201703
